FAERS Safety Report 24408261 (Version 1)
Quarter: 2024Q4

REPORT INFORMATION
  Report Type: Spontaneous
  Country: US (occurrence: US)
  Receive Date: 20241007
  Receipt Date: 20241007
  Transmission Date: 20250114
  Serious: No
  Sender: Harrow Health
  Company Number: US-IMP-2024000709

PATIENT
  Age: 77 Year
  Sex: Female

DRUGS (3)
  1. VEVYE [Suspect]
     Active Substance: CYCLOSPORINE
     Indication: Dry eye
     Dosage: ONE DROP BOTH EYES TWICE A DAY
     Route: 047
     Dates: start: 202408, end: 202408
  2. VEVYE [Suspect]
     Active Substance: CYCLOSPORINE
     Indication: Dry eye
     Dosage: ONE DROP TO BOTH EYES TWICE A DAY.
     Route: 047
     Dates: start: 20240814, end: 202408
  3. Retain eye drops [Concomitant]
     Indication: Product used for unknown indication

REACTIONS (4)
  - Eye irritation [Unknown]
  - Eye pain [Unknown]
  - Vision blurred [Unknown]
  - Drug ineffective [Unknown]

NARRATIVE: CASE EVENT DATE: 20240826
